FAERS Safety Report 8875751 (Version 1)
Quarter: 2012Q4

REPORT INFORMATION
  Report Type: 
  Country: US (occurrence: US)
  Receive Date: 20121030
  Receipt Date: 20121030
  Transmission Date: 20130627
  Serious: Yes (Other)
  Sender: FDA-Public Use
  Company Number: PHEH2012US020877

PATIENT
  Sex: Male

DRUGS (9)
  1. DIOVAN [Suspect]
     Indication: HYPERTENSION
     Dosage: 320 mg, daily
     Route: 048
  2. DIOVAN [Suspect]
     Dosage: 160 mg, daily
     Route: 048
  3. DIOVAN [Suspect]
     Dosage: 80 mg, daily
     Route: 048
  4. DIOVAN [Suspect]
     Dosage: 40 mg, UNK
  5. LOPRESSOR [Concomitant]
     Indication: HYPERTENSION
     Dosage: 12.5 mg, BID
     Route: 048
  6. MULTAQ [Concomitant]
     Indication: ARRHYTHMIA
  7. ASPIRIN N [Concomitant]
     Indication: CARDIAC DISORDER
  8. MULTI VITAMIN [Concomitant]
  9. TESTOSTERONE [Concomitant]

REACTIONS (5)
  - Atrial fibrillation [Unknown]
  - Tachycardia [Unknown]
  - Weight increased [Unknown]
  - Feeling abnormal [Unknown]
  - Drug intolerance [Unknown]
